FAERS Safety Report 9668434 (Version 1)
Quarter: 2013Q4

REPORT INFORMATION
  Report Type: Spontaneous
  Country: US (occurrence: US)
  Receive Date: 20131105
  Receipt Date: 20131105
  Transmission Date: 20140711
  Serious: Yes (Death)
  Sender: FDA-Public Use
  Company Number: US-PFIZER INC-2013312637

PATIENT
  Age: 34 Year
  Sex: Female

DRUGS (14)
  1. SUTENT [Suspect]
     Indication: NEUROENDOCRINE CARCINOMA
     Dosage: STRENGTH OF DOSAGE FORM 25 MG, UNK
     Dates: start: 20131016
  2. AMBIEN [Concomitant]
  3. LABETALOL HCL [Concomitant]
  4. PROZAC [Concomitant]
  5. ATIVAN [Concomitant]
  6. LOVENOX [Concomitant]
  7. CATAPRES-TTS [Concomitant]
  8. MORPHINE SULFATE [Concomitant]
  9. CLONIDINE HCL [Concomitant]
  10. NEXIUM [Concomitant]
  11. COLACE [Concomitant]
  12. PHENELZINE SULFATE [Concomitant]
  13. DOXAZOSIN MESILATE [Concomitant]
  14. PHENERGAN [Concomitant]
     Dosage: UNK

REACTIONS (1)
  - Death [Fatal]
